FAERS Safety Report 22367734 (Version 1)
Quarter: 2023Q2

REPORT INFORMATION
  Report Type: Spontaneous
  Country: US (occurrence: None)
  Receive Date: 20230525
  Receipt Date: 20230525
  Transmission Date: 20230721
  Serious: Yes (Death)
  Sender: FDA-Public Use
  Company Number: None

PATIENT
  Sex: Male

DRUGS (4)
  1. ESBRIET [Suspect]
     Active Substance: PIRFENIDONE
     Indication: Idiopathic pulmonary fibrosis
     Dosage: FREQUENCY : 3 TIMES A DAY;?
     Route: 048
     Dates: start: 20220809, end: 202305
  2. ASPIRIN LOW EC [Concomitant]
  3. MULTIVITAMIN TAB MEN 50+ [Concomitant]
  4. PIRFENIDONE [Concomitant]

REACTIONS (1)
  - Death [None]
